FAERS Safety Report 14553842 (Version 2)
Quarter: 2018Q1

REPORT INFORMATION
  Report Type: Spontaneous
  Country: US (occurrence: US)
  Receive Date: 20180220
  Receipt Date: 20180222
  Transmission Date: 20180509
  Serious: No
  Sender: FDA-Public Use
  Company Number: US-TEVA-2018-US-861847

PATIENT
  Sex: Female

DRUGS (1)
  1. CONSTULOSE [Suspect]
     Active Substance: LACTULOSE
     Indication: CONSTIPATION
     Dosage: 10MG/15ML SOLUTION
     Route: 048

REACTIONS (4)
  - Hypoaesthesia oral [Unknown]
  - Product odour abnormal [Unknown]
  - Product taste abnormal [Unknown]
  - Product quality issue [Unknown]
